FAERS Safety Report 13126415 (Version 5)
Quarter: 2017Q4

REPORT INFORMATION
  Report Type: Spontaneous
  Country: US (occurrence: US)
  Receive Date: 20170118
  Receipt Date: 20171221
  Transmission Date: 20180320
  Serious: No
  Sender: FDA-Public Use
  Company Number: US-ASTRAZENECA-2017SE03007

PATIENT
  Age: 20048 Day
  Sex: Male
  Weight: 79.4 kg

DRUGS (2)
  1. BYETTA [Suspect]
     Active Substance: EXENATIDE
     Indication: TYPE 2 DIABETES MELLITUS
     Route: 058
     Dates: end: 20170904
  2. BYDUREON [Suspect]
     Active Substance: EXENATIDE
     Indication: TYPE 2 DIABETES MELLITUS
     Route: 058
     Dates: start: 20170905

REACTIONS (12)
  - Blood glucose increased [Unknown]
  - Indifference [Unknown]
  - Choking [Unknown]
  - Vomiting [Recovered/Resolved]
  - Extra dose administered [Unknown]
  - Device leakage [Unknown]
  - Dizziness [Unknown]
  - Underdose [Unknown]
  - Skin mass [Unknown]
  - Nausea [Unknown]
  - Product use issue [Unknown]
  - Abdominal discomfort [Recovered/Resolved]

NARRATIVE: CASE EVENT DATE: 20170108
